FAERS Safety Report 9174763 (Version 1)
Quarter: 2013Q1

REPORT INFORMATION
  Report Type: Spontaneous
  Country: TR (occurrence: None)
  Receive Date: 20130318
  Receipt Date: 20130318
  Transmission Date: 20140127
  Serious: Yes (Other)
  Sender: FDA-Public Use
  Company Number: PD 186

PATIENT
  Age: 55 Year
  Sex: Female

DRUGS (2)
  1. ZUTRIPRO [Suspect]
     Route: 048
  2. PARACETAMOL [Concomitant]

REACTIONS (1)
  - Drug reaction with eosinophilia and systemic symptoms [None]
